FAERS Safety Report 20251143 (Version 1)
Quarter: 2021Q4

REPORT INFORMATION
  Report Type: Spontaneous
  Country: US (occurrence: US)
  Receive Date: 20211229
  Receipt Date: 20211229
  Transmission Date: 20220303
  Serious: Yes (Other)
  Sender: FDA-Public Use
  Company Number: US-CLOVIS ONCOLOGY-CLO-2021-000335

PATIENT
  Sex: Female

DRUGS (2)
  1. RUBRACA [Suspect]
     Active Substance: RUCAPARIB CAMSYLATE
     Indication: Fallopian tube cancer
     Dosage: 500 MILLIGRAM, BID
     Route: 048
     Dates: start: 20190716
  2. RUBRACA [Suspect]
     Active Substance: RUCAPARIB CAMSYLATE
     Indication: Ovarian cancer
     Dosage: 1000 MG, QTY 120, 30 DAY SUPPLY
     Route: 048
     Dates: start: 20190712, end: 20210222

REACTIONS (2)
  - Recurrent cancer [Unknown]
  - Drug ineffective [Unknown]
